FAERS Safety Report 5536498-5 (Version None)
Quarter: 2007Q4

REPORT INFORMATION
  Report Type: 
  Country: None (occurrence: None)
  Receive Date: 20071206
  Receipt Date: 20071022
  Transmission Date: 20080405
  Serious: Yes (Other)
  Sender: FDA-Public Use
  Company Number: US-AMGEN-KDL247895

PATIENT
  Sex: Male

DRUGS (5)
  1. ENBREL [Suspect]
     Indication: PSORIATIC ARTHROPATHY
     Route: 058
     Dates: start: 20041001
  2. LIPITOR [Concomitant]
  3. LOTREL [Concomitant]
  4. UBIDECARENONE [Concomitant]
  5. GLYBURIDE [Concomitant]

REACTIONS (3)
  - ORCHITIS [None]
  - PROSTATE CANCER [None]
  - PSORIATIC ARTHROPATHY [None]
